FAERS Safety Report 8966179 (Version 3)
Quarter: 2013Q2

REPORT INFORMATION
  Report Type: Report from Study
  Country: FR (occurrence: MC)
  Receive Date: 20121214
  Receipt Date: 20130610
  Transmission Date: 20140414
  Serious: Yes (Other)
  Sender: FDA-Public Use
  Company Number: FR-GENZYME-CLOF-1002418

PATIENT
  Age: 57 Year
  Sex: Male
  Weight: 78 kg

DRUGS (28)
  1. EVOLTRA [Suspect]
     Indication: ACUTE MYELOID LEUKAEMIA
     Dosage: 300 MG, UNK
     Route: 042
     Dates: start: 20120721, end: 20120725
  2. EVOLTRA [Suspect]
     Dosage: UNK, FIRST CONSOLIDATION CYCLE
     Route: 065
     Dates: end: 20120820
  3. EVOLTRA [Suspect]
     Dosage: UNK, SECOND CONSOLIDATION CYCLE
     Route: 065
     Dates: start: 20120920
  4. EVOLTRA [Suspect]
     Dosage: 300 MG, CONSOLIDATION TREATMENT 3
     Route: 042
     Dates: start: 20121104, end: 20121108
  5. CYTARABINE [Suspect]
     Indication: ACUTE MYELOID LEUKAEMIA
     Dosage: 1000 MG, UNK
     Route: 042
     Dates: start: 20120720, end: 20120724
  6. CYTARABINE [Suspect]
     Dosage: UNK, FIRST CONSOLIDATION CYCLE
     Route: 065
     Dates: end: 20120820
  7. CYTARABINE [Suspect]
     Dosage: UNK, SECOND CONSOLIDATION CYCLE
     Route: 065
     Dates: start: 20120920
  8. CYTARABINE [Suspect]
     Dosage: 10000 MG, CONSOLIDATION TREATMENT 3
     Route: 042
     Dates: start: 20121103, end: 20121107
  9. NEUPOGEN [Suspect]
     Indication: ACUTE MYELOID LEUKAEMIA
     Dosage: 1800 MCG, UNK
     Route: 042
     Dates: start: 20120720, end: 20120725
  10. NEUPOGEN [Suspect]
     Dosage: UNK , QD
     Route: 058
     Dates: start: 20121005
  11. HEPARIN [Concomitant]
     Indication: PRODUCT USED FOR UNKNOWN INDICATION
     Dosage: 7000 U/L, QD
     Route: 065
  12. FOLINIC ACID [Concomitant]
     Indication: PRODUCT USED FOR UNKNOWN INDICATION
     Dosage: 50 MG, 3X/W
     Route: 065
  13. FOLINIC ACID [Concomitant]
     Dosage: 25 MG, QD
     Route: 065
  14. TRIFLUCAN [Concomitant]
     Indication: PRODUCT USED FOR UNKNOWN INDICATION
     Dosage: 200 MG, QD
     Route: 065
  15. ZOPHREN [Concomitant]
     Indication: PRODUCT USED FOR UNKNOWN INDICATION
     Dosage: UNK (1 AMPULE)
     Route: 065
  16. LARGACTIL [Concomitant]
     Indication: PRODUCT USED FOR UNKNOWN INDICATION
     Dosage: UNKX QD (1 AMPULE)
     Route: 065
  17. PLITICAN [Concomitant]
     Indication: PRODUCT USED FOR UNKNOWN INDICATION
     Dosage: UNKX TID  (1 AMPULE)
     Route: 065
  18. FUNGIZONE [Concomitant]
     Indication: PRODUCT USED FOR UNKNOWN INDICATION
     Dosage: UNKX1CACHET X 6 TIMES PER DAY
     Route: 048
  19. DELURSAN [Concomitant]
     Indication: PRODUCT USED FOR UNKNOWN INDICATION
     Dosage: UNK
     Route: 065
  20. ZELITREX [Concomitant]
     Indication: PRODUCT USED FOR UNKNOWN INDICATION
     Dosage: 500 MG, BID
     Route: 065
  21. TACROLIMUS [Concomitant]
     Indication: PRODUCT USED FOR UNKNOWN INDICATION
     Dosage: UNK
     Route: 065
  22. CELLCEPT [Concomitant]
     Indication: PRODUCT USED FOR UNKNOWN INDICATION
     Dosage: UNK
     Route: 065
  23. METHOTREXATE [Concomitant]
     Indication: PRODUCT USED FOR UNKNOWN INDICATION
     Dosage: UNK
     Route: 065
  24. SOLU MEDROL [Concomitant]
     Indication: PRODUCT USED FOR UNKNOWN INDICATION
     Dosage: UNK
     Route: 065
  25. MOPRAL [Concomitant]
     Indication: PRODUCT USED FOR UNKNOWN INDICATION
     Dosage: UNK, QD
     Route: 065
  26. DEXERYL [Concomitant]
     Indication: PRODUCT USED FOR UNKNOWN INDICATION
     Dosage: UNK, 3 APPLICATIONS
     Route: 065
  27. SPASFON [Concomitant]
     Indication: PRODUCT USED FOR UNKNOWN INDICATION
     Dosage: 2 TABLETS THREE TIMES PER DAY, IF NEEDED
     Route: 065
  28. DOLIPRANE [Concomitant]
     Indication: PRODUCT USED FOR UNKNOWN INDICATION
     Dosage: 1 G FOUR TIMES PER DAY IF NEEDED
     Route: 065

REACTIONS (11)
  - Toxic skin eruption [Recovered/Resolved]
  - Shock [Unknown]
  - Proctitis [Recovered/Resolved]
  - Hepatocellular injury [Recovered/Resolved]
  - Cholestasis [Recovered/Resolved]
  - Neutropenic colitis [Unknown]
  - Colitis [Recovered/Resolved]
  - Venoocclusive liver disease [Recovered/Resolved]
  - Staphylococcal infection [Unknown]
  - Escherichia infection [Unknown]
  - Hyperthermia [Recovered/Resolved]
